FAERS Safety Report 12606503 (Version 1)
Quarter: 2016Q3

REPORT INFORMATION
  Report Type: Spontaneous
  Country: US (occurrence: None)
  Receive Date: 20160728
  Receipt Date: 20160728
  Transmission Date: 20161109
  Serious: Yes (Life-Threatening)
  Sender: FDA-Public Use
  Company Number: None

PATIENT
  Age: 37 Year
  Sex: Male

DRUGS (2)
  1. RISPERIDONE, 2 MG [Suspect]
     Active Substance: RISPERIDONE
     Indication: PSYCHOTIC DISORDER
     Route: 048
     Dates: start: 20160516, end: 20160518
  2. TRAZODONE, 100 MG [Suspect]
     Active Substance: TRAZODONE HYDROCHLORIDE
     Indication: INSOMNIA
     Route: 048
     Dates: start: 20160516, end: 20160718

REACTIONS (5)
  - Blood thyroid stimulating hormone increased [None]
  - Hypertension [None]
  - Drug level below therapeutic [None]
  - Electrocardiogram QT prolonged [None]
  - Anaemia [None]

NARRATIVE: CASE EVENT DATE: 20160517
